FAERS Safety Report 9290633 (Version 3)
Quarter: 2013Q3

REPORT INFORMATION
  Report Type: Report from Study
  Country: FR (occurrence: FR)
  Receive Date: 20130515
  Receipt Date: 20130708
  Transmission Date: 20140515
  Serious: Yes (Hospitalization)
  Sender: FDA-Public Use
  Company Number: FR-ROCHE-1223461

PATIENT
  Age: 67 Year
  Sex: Male

DRUGS (8)
  1. RITUXIMAB [Suspect]
     Indication: CHRONIC LYMPHOCYTIC LEUKAEMIA
     Dosage: TOTAL DOSE RECEIVED 696 MG/M2
     Route: 042
     Dates: start: 20110711, end: 20110725
  2. RITUXIMAB [Suspect]
     Dosage: TOTAL DOSE RECEIVED 930 MG/M2
     Route: 042
     Dates: start: 20110801
  3. FLUDARABINE [Suspect]
     Indication: CHRONIC LYMPHOCYTIC LEUKAEMIA
     Dosage: TOTAL DOSE RECEIVED 210 MG/M2
     Route: 048
     Dates: start: 20110717, end: 20110808
  4. FLUDARABINE [Suspect]
     Route: 048
     Dates: start: 20110817, end: 20111212
  5. CYCLOPHOSPHAMID [Suspect]
     Indication: CHRONIC LYMPHOCYTIC LEUKAEMIA
     Dosage: TOTAL DOSE RECEIVED 1350 MG/M2
     Route: 048
     Dates: start: 20110717, end: 20110808
  6. CYCLOPHOSPHAMID [Suspect]
     Route: 048
     Dates: start: 20110801, end: 20111212
  7. BACTRIM [Concomitant]
     Route: 048
     Dates: start: 20110711
  8. ALLOPURINOL [Concomitant]
     Route: 048

REACTIONS (1)
  - Febrile bone marrow aplasia [Recovered/Resolved]
